FAERS Safety Report 5946327-3 (Version None)
Quarter: 2008Q4

REPORT INFORMATION
  Report Type: 
  Country: None (occurrence: None)
  Receive Date: 20081110
  Receipt Date: 20081010
  Transmission Date: 20090506
  Serious: No
  Sender: FDA-Public Use
  Company Number: US-BAYER-200835827NA

PATIENT
  Age: 28 Year
  Sex: Female
  Weight: 62 kg

DRUGS (1)
  1. OCELLA [Suspect]
     Indication: MENORRHAGIA
     Route: 048
     Dates: start: 20081004

REACTIONS (2)
  - ABDOMINAL PAIN [None]
  - METRORRHAGIA [None]
